FAERS Safety Report 20655622 (Version 1)
Quarter: 2022Q1

REPORT INFORMATION
  Report Type: Spontaneous
  Country: US (occurrence: US)
  Receive Date: 20220330
  Receipt Date: 20220330
  Transmission Date: 20220423
  Serious: No
  Sender: FDA-Public Use
  Company Number: US-ALLERGAN-2202753US

PATIENT
  Age: 75 Year
  Sex: Female

DRUGS (3)
  1. UBRELVY [Suspect]
     Active Substance: UBROGEPANT
     Indication: Migraine
     Dosage: 50 MG
     Route: 048
     Dates: end: 20220118
  2. UBRELVY [Suspect]
     Active Substance: UBROGEPANT
     Dosage: 25 MG
     Route: 048
  3. UNSPECIFIED INGREDIENT [Concomitant]
     Active Substance: UNSPECIFIED INGREDIENT

REACTIONS (6)
  - Gait inability [Recovered/Resolved]
  - Movement disorder [Recovered/Resolved]
  - Aphasia [Recovered/Resolved]
  - Wrong technique in product usage process [Unknown]
  - Aura [Recovered/Resolved]
  - Drug ineffective [Unknown]

NARRATIVE: CASE EVENT DATE: 20220118
